FAERS Safety Report 19463522 (Version 1)
Quarter: 2021Q2

REPORT INFORMATION
  Report Type: Spontaneous
  Country: US (occurrence: US)
  Receive Date: 20210625
  Receipt Date: 20210625
  Transmission Date: 20210717
  Serious: Yes (Death, Other)
  Sender: FDA-Public Use
  Company Number: US-ALXN-A202107222

PATIENT
  Age: 57 Year
  Sex: Female

DRUGS (2)
  1. SOLIRIS [Suspect]
     Active Substance: ECULIZUMAB
     Indication: OFF LABEL USE
  2. SOLIRIS [Suspect]
     Active Substance: ECULIZUMAB
     Indication: MALIGNANT ATROPHIC PAPULOSIS
     Dosage: 900 MG, UNK
     Route: 065
     Dates: start: 20210603, end: 20210610

REACTIONS (4)
  - Intestinal perforation [Fatal]
  - Malignant atrophic papulosis [Fatal]
  - Off label use [Unknown]
  - Condition aggravated [Fatal]
